FAERS Safety Report 23962090 (Version 1)
Quarter: 2024Q2

REPORT INFORMATION
  Report Type: Spontaneous
  Country: MX (occurrence: None)
  Receive Date: 20240611
  Receipt Date: 20240611
  Transmission Date: 20240716
  Serious: Yes (Hospitalization)
  Sender: FDA-Public Use
  Company Number: MX-ROCHE-3579093

PATIENT
  Age: 0 Year
  Sex: Female
  Weight: 17 kg

DRUGS (4)
  1. PULMOZYME [Suspect]
     Active Substance: DORNASE ALFA
     Indication: Cystic fibrosis
     Route: 055
     Dates: start: 201407
  2. PULMOZYME [Suspect]
     Active Substance: DORNASE ALFA
     Route: 055
  3. TOBRAMYCIN [Concomitant]
     Active Substance: TOBRAMYCIN\TOBRAMYCIN SULFATE
  4. PANCREATIN [Concomitant]
     Active Substance: PANCRELIPASE

REACTIONS (4)
  - Off label use [Unknown]
  - Lung disorder [Unknown]
  - Pneumothorax [Not Recovered/Not Resolved]
  - Pneumonia [Not Recovered/Not Resolved]

NARRATIVE: CASE EVENT DATE: 20140701
